FAERS Safety Report 9056097 (Version 2)
Quarter: 2013Q1

REPORT INFORMATION
  Report Type: Spontaneous
  Country: US (occurrence: US)
  Receive Date: 20130205
  Receipt Date: 20130325
  Transmission Date: 20140127
  Serious: Yes (Other)
  Sender: FDA-Public Use
  Company Number: US-SANOFI-AVENTIS-2013SA009007

PATIENT
  Age: 54 Year
  Sex: Female
  Weight: 195 kg

DRUGS (22)
  1. LANTUS [Suspect]
     Indication: DIABETES MELLITUS
     Dosage: DOSE:40 UNIT(S)
  2. LANTUS [Suspect]
     Indication: DIABETES MELLITUS
     Dosage: DOSE:75 UNIT(S)
  3. LANTUS [Suspect]
     Indication: DIABETES MELLITUS
     Dosage: DOSE:150 UNIT(S)
  4. NOVOLOG [Concomitant]
     Dosage: DOSE:40 UNIT(S)
  5. SOLUTIONS FOR PARENTERAL NUTRITION [Concomitant]
  6. SIMVASTATIN [Concomitant]
  7. PHENTERMINE [Concomitant]
  8. MIRALAX [Concomitant]
  9. LISINOPRIL [Concomitant]
     Dosage: DOSE:20
  10. LANSOPRAZOLE [Concomitant]
  11. FLEXERIL [Concomitant]
  12. MONTELUKAST [Concomitant]
  13. CLINDAMYCIN [Concomitant]
     Dosage: TOPICAL
  14. DITROPAN [Concomitant]
  15. LASIX [Concomitant]
  16. GABAPENTIN [Concomitant]
  17. SINGULAIR [Concomitant]
  18. ZOFRAN [Concomitant]
  19. LEVOTHYROXINE [Concomitant]
  20. LOMOTIL [Concomitant]
  21. POTASSIUM [Concomitant]
  22. ALBUTEROL [Concomitant]

REACTIONS (1)
  - Intestinal resection [Not Recovered/Not Resolved]
